FAERS Safety Report 16945136 (Version 1)
Quarter: 2019Q4

REPORT INFORMATION
  Report Type: Spontaneous
  Country: CN (occurrence: CN)
  Receive Date: 20191022
  Receipt Date: 20191022
  Transmission Date: 20200122
  Serious: Yes (Hospitalization)
  Sender: FDA-Public Use
  Company Number: CN-ASTRAZENECA-2019SF49135

PATIENT
  Age: 83 Year
  Sex: Male

DRUGS (3)
  1. SEROQUEL [Suspect]
     Active Substance: QUETIAPINE FUMARATE
     Indication: ANXIETY
     Dosage: 25MG INTERMITTENTLY
     Route: 048
     Dates: start: 201905, end: 20190918
  2. SIMENGHUAN [Concomitant]
     Indication: INSOMNIA
     Route: 048
     Dates: start: 20190515, end: 20190918
  3. SEROQUEL [Suspect]
     Active Substance: QUETIAPINE FUMARATE
     Indication: ANXIETY
     Route: 048
     Dates: start: 20190515, end: 20190918

REACTIONS (2)
  - Rhabdomyolysis [Recovering/Resolving]
  - Coma [Recovering/Resolving]

NARRATIVE: CASE EVENT DATE: 20190921
